FAERS Safety Report 9585801 (Version 1)
Quarter: 2013Q4

REPORT INFORMATION
  Report Type: Report from Study
  Country: US (occurrence: US)
  Receive Date: 20131003
  Receipt Date: 20131003
  Transmission Date: 20140711
  Serious: Yes (Other)
  Sender: FDA-Public Use
  Company Number: US-ROCHE-1283318

PATIENT
  Sex: Female

DRUGS (4)
  1. ACTEMRA [Suspect]
     Indication: CASTLEMAN^S DISEASE
     Route: 042
     Dates: start: 20130917
  2. ACTEMRA [Suspect]
     Route: 042
     Dates: start: 20130903
  3. ACTEMRA [Suspect]
     Route: 042
     Dates: start: 20130820
  4. ACTEMRA [Suspect]
     Route: 042
     Dates: start: 20130806

REACTIONS (4)
  - High density lipoprotein decreased [Unknown]
  - White blood cell count decreased [Unknown]
  - Neutrophil count increased [Unknown]
  - Platelet count decreased [Unknown]
